FAERS Safety Report 20493373 (Version 5)
Quarter: 2022Q2

REPORT INFORMATION
  Report Type: Spontaneous
  Country: US (occurrence: US)
  Receive Date: 20220220
  Receipt Date: 20220401
  Transmission Date: 20220721
  Serious: Yes (Death, Hospitalization, Other)
  Sender: FDA-Public Use
  Company Number: US-CELLTRION INC.-2022US001938

PATIENT

DRUGS (6)
  1. INFLIXIMAB [Suspect]
     Active Substance: INFLIXIMAB
     Indication: Colitis
     Route: 065
  2. INFLIXIMAB [Suspect]
     Active Substance: INFLIXIMAB
     Indication: Pancreatitis
  3. BELINOSTAT [Suspect]
     Active Substance: BELINOSTAT
     Indication: Malignant melanoma
     Dosage: 1000MG/M SQ (10 DOSES)  DAYS 1 TO 5 OF 21-DAY CYCLE
     Dates: start: 20220110, end: 20220204
  4. BINIMETINIB [Suspect]
     Active Substance: BINIMETINIB
     Indication: Malignant melanoma
     Dosage: 45 MG, BID (50 DOSES)
     Route: 048
     Dates: start: 20220110, end: 20220204
  5. ELIQUIS [Concomitant]
     Active Substance: APIXABAN
     Indication: Deep vein thrombosis
     Dosage: UNK
     Dates: start: 2020
  6. MELOXICAM [Concomitant]
     Active Substance: MELOXICAM
     Indication: Osteoarthritis
     Dosage: UNK

REACTIONS (12)
  - Sepsis [Fatal]
  - COVID-19 [Fatal]
  - Shock [Fatal]
  - Escherichia infection [Fatal]
  - Multiple organ dysfunction syndrome [Fatal]
  - Uveal melanoma [Unknown]
  - Disease progression [Unknown]
  - Fall [Unknown]
  - Hyperkalaemia [Unknown]
  - Atrial fibrillation [Unknown]
  - Respiratory failure [Unknown]
  - Off label use [Unknown]

NARRATIVE: CASE EVENT DATE: 20220205
